FAERS Safety Report 23890623 (Version 1)
Quarter: 2024Q2

REPORT INFORMATION
  Report Type: Spontaneous
  Country: US (occurrence: None)
  Receive Date: 20240523
  Receipt Date: 20240523
  Transmission Date: 20240716
  Serious: Yes (Other)
  Sender: FDA-Public Use
  Company Number: None

PATIENT
  Age: 80 Year
  Sex: Male
  Weight: 80 kg

DRUGS (2)
  1. TENECTEPLASE [Suspect]
     Active Substance: TENECTEPLASE
     Indication: Ischaemic stroke
     Dosage: FREQUENCY : ONCE;?
     Route: 040
     Dates: start: 20240523, end: 20240523
  2. Iopamidol 370 mg iodine/mL (150 mL) for CT w contrast [Concomitant]
     Dates: start: 20240523, end: 20240523

REACTIONS (1)
  - Angioedema [None]

NARRATIVE: CASE EVENT DATE: 20240523
